FAERS Safety Report 8891152 (Version 2)
Quarter: 2012Q4

REPORT INFORMATION
  Report Type: 
  Country: JP (occurrence: JP)
  Receive Date: 20121107
  Receipt Date: 20121115
  Transmission Date: 20130627
  Serious: No
  Sender: FDA-Public Use
  Company Number: JP-PFIZER INC-2012276343

PATIENT
  Age: 82 Year
  Sex: Female
  Weight: 46 kg

DRUGS (4)
  1. ZITHROMAC SR [Suspect]
     Indication: SINUSITIS
     Dosage: 2 g daily
     Route: 048
     Dates: start: 20121024
  2. TALION [Concomitant]
     Indication: ALLERGIC RHINITIS
     Dosage: 10 mg, 2x/day
     Route: 048
     Dates: start: 2009
  3. MUCODYNE [Concomitant]
     Indication: ALLERGIC RHINITIS
     Dosage: 500 mg, 3x/day
     Route: 048
     Dates: start: 2009
  4. URSO [Concomitant]
     Indication: HEPATIC DISEASE
     Dosage: 100 mg, 3x/day
     Route: 048
     Dates: start: 2011

REACTIONS (2)
  - Rhinitis [Recovering/Resolving]
  - Face oedema [Recovering/Resolving]
